FAERS Safety Report 5606538-3 (Version None)
Quarter: 2008Q1

REPORT INFORMATION
  Report Type: 
  Country: None (occurrence: None)
  Receive Date: 20080129
  Receipt Date: 20080125
  Transmission Date: 20080703
  Serious: Yes (Other)
  Sender: FDA-Public Use
  Company Number: D0055933A

PATIENT

DRUGS (1)
  1. LAMICTAL [Suspect]
     Dosage: 175MG PER DAY
     Route: 048

REACTIONS (2)
  - ANTICONVULSANT DRUG LEVEL ABOVE THERAPEUTIC [None]
  - EPILEPSY [None]
